FAERS Safety Report 9134048 (Version 1)
Quarter: 2013Q1

REPORT INFORMATION
  Report Type: Spontaneous
  Country: US (occurrence: None)
  Receive Date: 20130227
  Receipt Date: 20130227
  Transmission Date: 20140127
  Serious: Yes (Death, Other)
  Sender: FDA-Public Use
  Company Number: None

PATIENT
  Age: 49 Year
  Sex: Female
  Weight: 63.05 kg

DRUGS (5)
  1. FENTANYL [Suspect]
     Indication: EHLERS-DANLOS SYNDROME
     Route: 062
     Dates: start: 19980101, end: 20130219
  2. FENTANYL [Suspect]
     Indication: PAIN MANAGEMENT
     Route: 062
     Dates: start: 19980101, end: 20130219
  3. Z-PAK [Suspect]
     Indication: BRONCHITIS
     Route: 048
     Dates: start: 20130211, end: 20130215
  4. CODEINE-GUAFENESIN [Concomitant]
  5. XANAX [Concomitant]

REACTIONS (7)
  - Fatigue [None]
  - Activities of daily living impaired [None]
  - Local swelling [None]
  - Dyspnoea [None]
  - Respiratory arrest [None]
  - Blood pressure decreased [None]
  - Liver function test abnormal [None]
